FAERS Safety Report 6705649-9 (Version None)
Quarter: 2010Q2

REPORT INFORMATION
  Report Type: 
  Country: None (occurrence: None)
  Receive Date: 20100503
  Receipt Date: 20100421
  Transmission Date: 20101027
  Serious: No
  Sender: FDA-Public Use
  Company Number: 2010BI000818

PATIENT
  Sex: Female

DRUGS (2)
  1. TYSABRI [Suspect]
     Indication: MULTIPLE SCLEROSIS
     Route: 042
     Dates: start: 20091211
  2. DEPAKOTE [Concomitant]

REACTIONS (15)
  - ABDOMINAL DISTENSION [None]
  - ARTHRALGIA [None]
  - CONSTIPATION [None]
  - DECREASED APPETITE [None]
  - DYSSTASIA [None]
  - FATIGUE [None]
  - HYPOTENSION [None]
  - MEMORY IMPAIRMENT [None]
  - NECK PAIN [None]
  - PAIN IN EXTREMITY [None]
  - SOMNOLENCE [None]
  - TREMOR [None]
  - VITAMIN B12 DECREASED [None]
  - VITAMIN D DECREASED [None]
  - WEIGHT INCREASED [None]
